FAERS Safety Report 11104385 (Version 1)
Quarter: 2015Q2

REPORT INFORMATION
  Report Type: Spontaneous
  Country: US (occurrence: US)
  Receive Date: 20150511
  Receipt Date: 20150511
  Transmission Date: 20150821
  Serious: No
  Sender: FDA-Public Use
  Company Number: US-BAYER-2015-179332

PATIENT
  Age: 56 Year
  Sex: Male

DRUGS (2)
  1. STIVARGA [Suspect]
     Active Substance: REGORAFENIB
     Indication: HEPATIC CANCER
     Dosage: 160 MG DAILY DOSE
  2. STIVARGA [Suspect]
     Active Substance: REGORAFENIB
     Indication: HEPATIC CANCER
     Dosage: 120 MG DAILY DOSE

REACTIONS (5)
  - Scrotal erythema [None]
  - Blood bilirubin increased [None]
  - Testis discomfort [None]
  - Product container issue [None]
  - Product use issue [None]
